FAERS Safety Report 8974210 (Version 4)
Quarter: 2013Q4

REPORT INFORMATION
  Report Type: Spontaneous
  Country: JP (occurrence: None)
  Receive Date: 20121213
  Receipt Date: 20131212
  Transmission Date: 20140711
  Serious: Yes (Hospitalization, Disabling)
  Sender: FDA-Public Use
  Company Number: 2009JP007232

PATIENT
  Age: 28 Year
  Sex: Female
  Weight: 45.7 kg

DRUGS (20)
  1. PROGRAF [Suspect]
     Indication: LUPUS NEPHRITIS
     Route: 048
     Dates: start: 20091029, end: 20110815
  2. PREDNISOLONE [Suspect]
     Indication: LUPUS NEPHRITIS
     Route: 048
     Dates: end: 20090401
  3. SOLU MEDROL [Suspect]
     Indication: RASH
     Dosage: IV NOS.
     Route: 042
  4. BAYASPIRIN (ACETYLSALICYLIC ACID) ENTERIC TABLET [Concomitant]
  5. ASPARA-CA (ASPARTATE CALCIUM) TABLET [Concomitant]
  6. SLOW-FE (FERROUS SULFATE) TABLET [Concomitant]
  7. BONALON (ALENDRONATE SODIUM) TABLET [Concomitant]
  8. BLOSTAR M (FAMOTIDINE) TABLET [Concomitant]
  9. ITRIZOLE (ITRACONAZOLE) SOLUTION (ORAL USE) [Concomitant]
  10. HYALEIN (HYALURONATE SODIUM) EYE DROP [Concomitant]
  11. METHYCOBAL (MECOBALAMIN) TABLET [Concomitant]
  12. BACTRAMIN (SULFAMETHOXAZOLE, TRIMETHOPRIM) [Concomitant]
  13. FUNGIZONE (AMPHOTERICIN B) SYRUP [Concomitant]
  14. LORFENAMIN (LOXOPROFEN SODIUM) TABLET [Concomitant]
  15. MUCOSTA (REBAMIPIDE) TABLET [Concomitant]
  16. METHYLPREDNISOLONE   /00049602/ (METHYLPREDNISOLONE SODIUM SUCCINATE) INJECTION [Concomitant]
  17. PREDONINE   /00016203/ (PREDNISOLONE SODIUM SUCCINATE) INJECTION [Concomitant]
  18. BREDININ (MIZORIBINE) TABLET [Concomitant]
  19. DEPAS (ETIZOLAM) PER ORAL NOS [Concomitant]
  20. ENDOXAN   /00021101/ (CYCLOPHOSPHAMIDE) INJECTION [Concomitant]

REACTIONS (9)
  - Intracranial hypotension [None]
  - Pruritus [None]
  - Osteonecrosis [None]
  - Rash [None]
  - Anxiety disorder [None]
  - Paraesthesia [None]
  - Transplant [None]
  - Death of relative [None]
  - Rash [None]
